FAERS Safety Report 5129280-4 (Version None)
Quarter: 2006Q4

REPORT INFORMATION
  Report Type: 
  Country: None (occurrence: None)
  Receive Date: 20061011
  Receipt Date: 20060925
  Transmission Date: 20070319
  Serious: Yes (Hospitalization)
  Sender: FDA-Public Use
  Company Number: ALA_0010_2006

PATIENT
  Age: 39 Year
  Sex: Male

DRUGS (4)
  1. MESALAZINE [Suspect]
     Indication: CHOLANGITIS SCLEROSING
     Dosage: DF
  2. MESALAZINE [Suspect]
     Indication: CROHN'S DISEASE
     Dosage: DF
  3. SALBUTAMOL [Concomitant]
  4. URSODEOXYCHOLIC ACID [Concomitant]

REACTIONS (14)
  - ALLERGIC GRANULOMATOUS ANGIITIS [None]
  - ARTHRALGIA [None]
  - BLASTOCYSTIS INFECTION [None]
  - BONE MARROW EOSINOPHILIC LEUKOCYTE COUNT INCREASED [None]
  - CEREBRAL ISCHAEMIA [None]
  - EMPHYSEMA [None]
  - FUNGUS STOOL IDENTIFIED [None]
  - HYPERACUSIS [None]
  - IIIRD NERVE PARALYSIS [None]
  - NYSTAGMUS [None]
  - OBSTRUCTIVE AIRWAYS DISORDER [None]
  - PARAESTHESIA [None]
  - VERTIGO [None]
  - VESTIBULAR DISORDER [None]
